FAERS Safety Report 19375227 (Version 2)
Quarter: 2022Q3

REPORT INFORMATION
  Report Type: Spontaneous
  Country: JP (occurrence: JP)
  Receive Date: 20210604
  Receipt Date: 20220928
  Transmission Date: 20221027
  Serious: Yes (Death, Hospitalization)
  Sender: FDA-Public Use
  Company Number: JP-EISAI-202102325_LEN-HCC_P_1

PATIENT
  Sex: Male
  Weight: 68 kg

DRUGS (1)
  1. LENVATINIB [Suspect]
     Active Substance: LENVATINIB
     Indication: Hepatocellular carcinoma
     Route: 048

REACTIONS (3)
  - Liver carcinoma ruptured [Fatal]
  - Shock [Fatal]
  - Intratumoural haematoma [Not Recovered/Not Resolved]
